FAERS Safety Report 7343727-4 (Version None)
Quarter: 2011Q1

REPORT INFORMATION
  Report Type: 
  Country: None (occurrence: None)
  Receive Date: 20110310
  Receipt Date: 20101206
  Transmission Date: 20110831
  Serious: No
  Sender: FDA-Public Use
  Company Number: A0897919A

PATIENT
  Age: 71 Year
  Sex: Female

DRUGS (2)
  1. NICOTINE POLACRILEX [Suspect]
  2. NICOTINE POLACRILEX [Suspect]

REACTIONS (7)
  - LIP SWELLING [None]
  - ORAL PAIN [None]
  - INTENTIONAL DRUG MISUSE [None]
  - STOMATITIS [None]
  - DYSKINESIA [None]
  - ORAL DISCOMFORT [None]
  - PARAESTHESIA ORAL [None]
